FAERS Safety Report 9425209 (Version 1)
Quarter: 2013Q3

REPORT INFORMATION
  Report Type: Spontaneous
  Country: FR (occurrence: FR)
  Receive Date: 20130729
  Receipt Date: 20130729
  Transmission Date: 20140515
  Serious: Yes (Disabling, Other)
  Sender: FDA-Public Use
  Company Number: FR-PFIZER INC-2013215550

PATIENT
  Age: 72 Year
  Sex: Female

DRUGS (4)
  1. XALKORI [Suspect]
     Indication: MALIGNANT NEOPLASM OF PLEURA
     Dosage: 250 MG, 2X/DAY
     Route: 048
     Dates: start: 20130131, end: 20130220
  2. XALKORI [Suspect]
     Dosage: 250 MG, 1X/DAY
     Route: 048
     Dates: start: 20130221, end: 20130304
  3. XALKORI [Suspect]
     Dosage: 200 MG, 1X/DAY
     Route: 048
     Dates: start: 20130311, end: 20130326
  4. XALKORI [Suspect]
     Dosage: 20 MG, 2X/DAY
     Route: 048
     Dates: start: 20130327

REACTIONS (7)
  - Diarrhoea [Recovered/Resolved]
  - Nausea [Recovered/Resolved]
  - Atonic urinary bladder [Not Recovered/Not Resolved]
  - Asthenia [Not Recovered/Not Resolved]
  - Dysgeusia [Not Recovered/Not Resolved]
  - Balance disorder [Recovering/Resolving]
  - Rash [Recovered/Resolved]
